FAERS Safety Report 5517694-X (Version None)
Quarter: 2007Q4

REPORT INFORMATION
  Report Type: 
  Country: None (occurrence: None)
  Receive Date: 20071114
  Receipt Date: 20071105
  Transmission Date: 20080405
  Serious: Yes (Other)
  Sender: FDA-Public Use
  Company Number: US-ELI_LILLY_AND_COMPANY-US200711002153

PATIENT
  Age: 27 Year
  Sex: Female

DRUGS (3)
  1. CYMBALTA [Suspect]
     Dosage: 60 MG, UNK
     Dates: start: 20070901
  2. CYMBALTA [Suspect]
     Dosage: 30 MG, UNK
  3. EFFEXOR [Concomitant]
     Dosage: 1 D/F, UNK

REACTIONS (4)
  - BLOOD BILIRUBIN INCREASED [None]
  - HYPERHIDROSIS [None]
  - KIDNEY INFECTION [None]
  - URINARY HESITATION [None]
